FAERS Safety Report 7989207-4 (Version None)
Quarter: 2011Q4

REPORT INFORMATION
  Report Type: 
  Country: None (occurrence: None)
  Receive Date: 20111215
  Receipt Date: 20111215
  Transmission Date: 20120403
  Serious: No
  Sender: FDA-Public Use
  Company Number: None

PATIENT
  Age: 18 Year
  Sex: Male

DRUGS (1)
  1. PHENYTOIN [Suspect]
     Dates: start: 20100917, end: 20101023

REACTIONS (11)
  - INFLUENZA LIKE ILLNESS [None]
  - RASH [None]
  - BLOOD ALKALINE PHOSPHATASE INCREASED [None]
  - PLEURAL EFFUSION [None]
  - ALANINE AMINOTRANSFERASE INCREASED [None]
  - HEPATOMEGALY [None]
  - PYREXIA [None]
  - DIARRHOEA [None]
  - ASPARTATE AMINOTRANSFERASE INCREASED [None]
  - BLOOD BILIRUBIN INCREASED [None]
  - HYPERSENSITIVITY [None]
